FAERS Safety Report 12885947 (Version 1)
Quarter: 2016Q4

REPORT INFORMATION
  Report Type: Spontaneous
  Country: US (occurrence: US)
  Receive Date: 20161026
  Receipt Date: 20161026
  Transmission Date: 20170207
  Serious: Yes (Hospitalization)
  Sender: FDA-Public Use
  Company Number: None

PATIENT
  Age: 68 Year
  Sex: Female
  Weight: 133 kg

DRUGS (14)
  1. FE [Concomitant]
     Active Substance: IRON
  2. LISINOPRIL. [Suspect]
     Active Substance: LISINOPRIL
     Indication: HYPERTENSION
     Dosage: 20MG Q MORNING PO
     Route: 048
  3. LASIX [Suspect]
     Active Substance: FUROSEMIDE
     Indication: ARTHRITIS
  4. AMARYL [Concomitant]
     Active Substance: GLIMEPIRIDE
  5. PRILOSEC [Concomitant]
     Active Substance: OMEPRAZOLE MAGNESIUM
  6. TRAMADOL. [Concomitant]
     Active Substance: TRAMADOL
  7. ASA [Concomitant]
     Active Substance: ASPIRIN
  8. FLEXERIL [Concomitant]
     Active Substance: CYCLOBENZAPRINE HYDROCHLORIDE
  9. MEVACOR [Concomitant]
     Active Substance: LOVASTATIN
  10. MELOXICAM. [Suspect]
     Active Substance: MELOXICAM
     Route: 048
  11. SPIRONOLACTONE 25MG PO DAILY [Suspect]
     Active Substance: SPIRONOLACTONE
     Route: 048
  12. ALBUTEROL. [Concomitant]
     Active Substance: ALBUTEROL
  13. CELEXA [Concomitant]
     Active Substance: CITALOPRAM HYDROBROMIDE
  14. NPH INSULIN [Concomitant]
     Active Substance: INSULIN BEEF

REACTIONS (3)
  - Dehydration [None]
  - Acute kidney injury [None]
  - Hyperkalaemia [None]

NARRATIVE: CASE EVENT DATE: 20151207
